FAERS Safety Report 24104154 (Version 2)
Quarter: 2024Q3

REPORT INFORMATION
  Report Type: Spontaneous
  Country: GB (occurrence: GB)
  Receive Date: 20240717
  Receipt Date: 20240731
  Transmission Date: 20241017
  Serious: Yes (Death, Other)
  Sender: TEVA
  Company Number: None

PATIENT
  Age: 93 Year
  Sex: Male

DRUGS (15)
  1. ATORVASTATIN [Suspect]
     Active Substance: ATORVASTATIN
     Dosage: AT NIGHT, DURATION: 33 DAYS
     Dates: start: 20240325, end: 20240426
  2. SODIUM BICARBONATE [Concomitant]
     Active Substance: SODIUM BICARBONATE
  3. CODEINE [Concomitant]
     Active Substance: CODEINE
  4. FERROUS FUMARATE [Concomitant]
     Active Substance: FERROUS FUMARATE
  5. ZEROBASE [Concomitant]
  6. ASPIRIN [Concomitant]
     Active Substance: ASPIRIN
  7. BISOPROLOL [Concomitant]
     Active Substance: BISOPROLOL\BISOPROLOL FUMARATE
  8. PREDNISOLONE [Concomitant]
     Active Substance: PREDNISOLONE
  9. DOXYCYCLINE [Concomitant]
     Active Substance: DOXYCYCLINE\DOXYCYCLINE HYCLATE
  10. ALFENTANIL [Concomitant]
     Active Substance: ALFENTANIL
  11. ACETAMINOPHEN [Concomitant]
     Active Substance: ACETAMINOPHEN
  12. OMEPRAZOLE [Concomitant]
     Active Substance: OMEPRAZOLE
  13. ENOXAPARIN [Concomitant]
     Active Substance: ENOXAPARIN
  14. CALCIUM CARBONATE [Concomitant]
     Active Substance: CALCIUM CARBONATE
  15. SODIUM ZIRCONIUM CYCLOSILICATE [Concomitant]
     Active Substance: SODIUM ZIRCONIUM CYCLOSILICATE

REACTIONS (4)
  - Acute kidney injury [Fatal]
  - Rhabdomyolysis [Unknown]
  - Immune-mediated myositis [Unknown]
  - Peripheral vascular disorder [Unknown]
